FAERS Safety Report 18431342 (Version 6)
Quarter: 2021Q2

REPORT INFORMATION
  Report Type: Spontaneous
  Country: US (occurrence: US)
  Receive Date: 20201027
  Receipt Date: 20210427
  Transmission Date: 20210717
  Serious: No
  Sender: FDA-Public Use
  Company Number: US-PFIZER INC-2020408136

PATIENT
  Age: 11 Year
  Sex: Female

DRUGS (3)
  1. GENOTROPIN [Suspect]
     Active Substance: SOMATROPIN
     Dosage: 2.6 MG
     Dates: start: 2019
  2. GENOTROPIN [Suspect]
     Active Substance: SOMATROPIN
     Dosage: UNK
     Dates: start: 202002
  3. GENOTROPIN [Suspect]
     Active Substance: SOMATROPIN
     Dosage: 2.6 MG, CYCLIC (SIX DAYS A WEEK)
     Dates: start: 20201008

REACTIONS (3)
  - Device failure [Unknown]
  - Drug dose omission by device [Unknown]
  - Device issue [Unknown]
